FAERS Safety Report 8584663-5 (Version None)
Quarter: 2012Q3

REPORT INFORMATION
  Report Type: 
  Country: None (occurrence: None)
  Receive Date: 20120810
  Receipt Date: 20120731
  Transmission Date: 20120928
  Serious: Yes (Hospitalization)
  Sender: FDA-Public Use
  Company Number: US-BAYER-2012-045935

PATIENT
  Age: 34 Year
  Sex: Female

DRUGS (20)
  1. ARTHROTEC [Concomitant]
     Dosage: 50-200 MG-MCG
     Route: 048
     Dates: start: 20061211
  2. YAZ [Suspect]
  3. SOMA [Concomitant]
     Dosage: 350 MG, UNK
     Route: 048
     Dates: start: 20061227
  4. FIORICET [Concomitant]
     Dosage: 50-325-40 MG
     Route: 048
     Dates: start: 20061211
  5. BACLOFEN [Concomitant]
     Indication: MUSCLE RELAXANT THERAPY
     Dosage: 20 MG, TID
     Route: 048
     Dates: start: 20061114
  6. PHENTERMINE [Concomitant]
     Indication: DECREASED APPETITE
     Dosage: 30 MG, UNK
     Route: 048
     Dates: start: 20061115
  7. PREVACID [Concomitant]
     Dosage: 30 MG, UNK
     Dates: start: 20070127
  8. HYDROCODONE BITARTRATE + ACETAMINOPHEN [Concomitant]
     Dosage: 5-325 MG
     Route: 048
     Dates: start: 20061128
  9. SOMA [Concomitant]
     Dosage: 350 MG, UNK
     Route: 048
     Dates: start: 20061128
  10. CIPROFLOXACIN [Concomitant]
     Dosage: 500 MG, BID
     Route: 048
     Dates: start: 20070122
  11. FIORICET [Concomitant]
     Dosage: 50-325-40 MG
     Route: 048
     Dates: start: 20070119
  12. PHENTERMINE [Concomitant]
     Dosage: 30 MG, UNK
     Route: 048
     Dates: start: 20070126
  13. PREVACID [Concomitant]
     Dosage: 30 MG, UNK
     Route: 048
     Dates: start: 20061211
  14. HYDROCODONE BITARTRATE + ACETAMINOPHEN [Concomitant]
     Dosage: 5-325 MG
     Route: 048
     Dates: start: 20061211
  15. SOMA [Concomitant]
     Dosage: 350 MG, UNK
     Route: 048
     Dates: start: 20061211
  16. FIORICET [Concomitant]
     Dosage: 50-325-40 MG
     Route: 048
     Dates: start: 20061128
  17. PHENAZOPYRIDINE HCL TAB [Concomitant]
     Dosage: 200 MG, TID
     Route: 048
     Dates: start: 20070122
  18. YASMIN [Suspect]
  19. COMPAZINE [Concomitant]
     Indication: NAUSEA
     Dosage: 5 MG TABS TO TWO EVERY EIGHT HOURS AS NEEDED FOR NAUSEA
     Route: 048
     Dates: start: 20070119
  20. BACLOFEN [Concomitant]
     Dosage: 20 MG, TID
     Route: 048
     Dates: start: 20070110

REACTIONS (8)
  - DEEP VEIN THROMBOSIS [None]
  - PAIN [None]
  - INJURY [None]
  - ANHEDONIA [None]
  - QUALITY OF LIFE DECREASED [None]
  - EMOTIONAL DISTRESS [None]
  - ANXIETY [None]
  - FEAR [None]
